FAERS Safety Report 9831561 (Version 1)
Quarter: 2014Q1

REPORT INFORMATION
  Report Type: Report from Study
  Country: JP (occurrence: JP)
  Receive Date: 20140121
  Receipt Date: 20140121
  Transmission Date: 20141002
  Serious: Yes (Hospitalization)
  Sender: FDA-Public Use
  Company Number: JP-JNJFOC-20140107496

PATIENT
  Age: 86 Year
  Sex: Female
  Weight: 54 kg

DRUGS (7)
  1. XARELTO [Suspect]
     Indication: ATRIAL FIBRILLATION
     Route: 048
     Dates: start: 20130627, end: 20130825
  2. XARELTO [Suspect]
     Indication: THROMBOSIS PROPHYLAXIS
     Route: 048
     Dates: start: 20130627, end: 20130825
  3. XARELTO [Suspect]
     Indication: CEREBROVASCULAR ACCIDENT PROPHYLAXIS
     Route: 048
     Dates: start: 20130627, end: 20130825
  4. TAKEPRON [Concomitant]
     Indication: PROPHYLAXIS
     Route: 048
  5. MAINTATE [Concomitant]
     Route: 048
  6. DIOVAN [Concomitant]
     Route: 048
     Dates: end: 20130728
  7. ALLOZYM [Concomitant]
     Route: 048

REACTIONS (1)
  - Anaemia [Recovering/Resolving]
